FAERS Safety Report 12866741 (Version 5)
Quarter: 2017Q1

REPORT INFORMATION
  Report Type: Spontaneous
  Country: US (occurrence: US)
  Receive Date: 20161020
  Receipt Date: 20170131
  Transmission Date: 20170428
  Serious: Yes (Hospitalization)
  Sender: FDA-Public Use
  Company Number: US-ASTRAZENECA-2016SF09474

PATIENT
  Age: 31442 Day
  Sex: Female
  Weight: 60.8 kg

DRUGS (8)
  1. CARDEDILOL [Concomitant]
     Active Substance: CARVEDILOL
     Indication: HYPERTENSION
     Route: 048
     Dates: start: 20160929
  2. AMLODIPINE [Concomitant]
     Active Substance: AMLODIPINE BESYLATE
     Indication: HYPERTENSION
     Route: 048
     Dates: start: 20160929
  3. SYMBICORT [Suspect]
     Active Substance: BUDESONIDE\FORMOTEROL FUMARATE DIHYDRATE
     Indication: CHRONIC OBSTRUCTIVE PULMONARY DISEASE
     Dosage: 160/4.5 MCG TWO PUFFS TWICE PER DAY
     Route: 055
     Dates: start: 2013
  4. TUDORZA PRESSAIR [Suspect]
     Active Substance: ACLIDINIUM BROMIDE
     Indication: CHRONIC OBSTRUCTIVE PULMONARY DISEASE
     Route: 055
     Dates: start: 201610
  5. SYMBICORT [Suspect]
     Active Substance: BUDESONIDE\FORMOTEROL FUMARATE DIHYDRATE
     Indication: CHRONIC OBSTRUCTIVE PULMONARY DISEASE
     Dosage: 160/4.5 MCG TWO PUFFS TWICE PER DAY
     Route: 055
     Dates: start: 2011
  6. OXYGEN. [Concomitant]
     Active Substance: OXYGEN
     Indication: DYSPNOEA
     Dosage: AS REQUIRED
     Route: 048
  7. TUDORZA PRESSAIR [Suspect]
     Active Substance: ACLIDINIUM BROMIDE
     Indication: CHRONIC OBSTRUCTIVE PULMONARY DISEASE
     Route: 055
     Dates: start: 2015
  8. LOSARTAN. [Concomitant]
     Active Substance: LOSARTAN
     Indication: HYPERTENSION
     Route: 048
     Dates: start: 20160929

REACTIONS (12)
  - Blood pressure systolic increased [Unknown]
  - Dyspnoea [Unknown]
  - Diverticulitis [Unknown]
  - Hypophagia [Unknown]
  - Circumstance or information capable of leading to medication error [Unknown]
  - Drug effect incomplete [Unknown]
  - Gastrointestinal disorder [Unknown]
  - Device failure [Unknown]
  - Abnormal loss of weight [Unknown]
  - Dyspnoea exertional [Unknown]
  - Fatigue [Unknown]
  - Multiple allergies [Unknown]

NARRATIVE: CASE EVENT DATE: 20160929
